FAERS Safety Report 15732715 (Version 2)
Quarter: 2019Q1

REPORT INFORMATION
  Report Type: Spontaneous
  Country: JP (occurrence: JP)
  Receive Date: 20181217
  Receipt Date: 20190116
  Transmission Date: 20190417
  Serious: Yes (Other)
  Sender: FDA-Public Use
  Company Number: JP-BRISTOL-MYERS SQUIBB COMPANY-BMS-2018-115905

PATIENT
  Age: 60 Year
  Sex: Female

DRUGS (2)
  1. KENACORT-A [Suspect]
     Active Substance: TRIAMCINOLONE
     Indication: KELOID SCAR
     Dosage: UNK
     Route: 065
  2. TRANILAST [Suspect]
     Active Substance: TRANILAST
     Indication: KELOID SCAR
     Dosage: UNK
     Route: 048

REACTIONS (2)
  - Pain [Unknown]
  - Squamous cell carcinoma of skin [Unknown]
